FAERS Safety Report 8185962-1 (Version None)
Quarter: 2012Q1

REPORT INFORMATION
  Report Type: 
  Country: None (occurrence: None)
  Receive Date: 20120305
  Receipt Date: 20120221
  Transmission Date: 20120608
  Serious: Yes (Other)
  Sender: FDA-Public Use
  Company Number: NL-MYLANLABS-2012S1003813

PATIENT
  Age: 63 Year
  Sex: Female
  Weight: 110 kg

DRUGS (4)
  1. ACETYLSALICYLZUUR [Concomitant]
     Indication: PRODUCT USED FOR UNKNOWN INDICATION
     Dosage: 1XDGS 1 TBL
     Route: 048
     Dates: start: 20010101
  2. HYDROCHLOROTHIAZIDE [Concomitant]
     Indication: PRODUCT USED FOR UNKNOWN INDICATION
     Dosage: 1XDGS 1 TBL
     Route: 048
     Dates: start: 20010101
  3. SELOKEEN [Concomitant]
     Indication: PRODUCT USED FOR UNKNOWN INDICATION
     Dosage: DOSERING ONBEKEND
     Route: 048
     Dates: start: 20010101
  4. OMEPRAZOLE [Suspect]
     Indication: GASTROOESOPHAGEAL REFLUX DISEASE
     Dosage: 1X20MG OMEPRAZOLUM CAPS M
     Route: 048
     Dates: start: 20110501, end: 20120127

REACTIONS (3)
  - VISUAL ACUITY REDUCED [None]
  - ARTHRALGIA [None]
  - HEADACHE [None]
